FAERS Safety Report 9097069 (Version 1)
Quarter: 2013Q1

REPORT INFORMATION
  Report Type: Spontaneous
  Country: TR (occurrence: None)
  Receive Date: 20130123
  Receipt Date: 20130123
  Transmission Date: 20140127
  Serious: Yes (Life-Threatening, Hospitalization)
  Sender: FDA-Public Use
  Company Number: DSM-2013-00024

PATIENT
  Age: 34 Year
  Sex: Female

DRUGS (2)
  1. OLMESARTAN [Suspect]
     Indication: OFF LABEL USE
     Route: 048
  2. AMLODIPINE [Suspect]
     Indication: OFF LABEL USE
     Route: 048

REACTIONS (5)
  - Shock [None]
  - Heart rate increased [None]
  - Mean arterial pressure decreased [None]
  - Deep vein thrombosis [None]
  - Suicide attempt [None]
